FAERS Safety Report 9818531 (Version 2)
Quarter: 2014Q2

REPORT INFORMATION
  Report Type: Other
  Country: US (occurrence: US)
  Receive Date: 20140115
  Receipt Date: 20140630
  Transmission Date: 20141212
  Serious: Yes (Hospitalization, Disabling)
  Sender: FDA-Public Use
  Company Number: US-ACORDA-ACO_101124_2014

PATIENT
  Age: 49 Year
  Sex: Female
  Weight: 95.24 kg

DRUGS (8)
  1. AMPYRA [Suspect]
     Indication: PRODUCT USED FOR UNKNOWN INDICATION
     Dosage: 10 MG, Q 12 HRS
     Route: 048
  2. AMPYRA [Suspect]
     Dosage: 10 MG, Q 12 HRS
     Route: 048
  3. CELEBREX [Concomitant]
     Indication: PRODUCT USED FOR UNKNOWN INDICATION
     Dosage: UNK,UNK
     Route: 065
  4. FLEXERIL [Concomitant]
     Indication: PRODUCT USED FOR UNKNOWN INDICATION
     Dosage: 1 TABLET, BID
     Route: 048
     Dates: start: 20140108
  5. GILENYA [Concomitant]
     Indication: PRODUCT USED FOR UNKNOWN INDICATION
     Dosage: 0.5 MG, QD
     Route: 048
     Dates: start: 20131211
  6. HYDROCODONE BITARTRATE AND ACETAMINOPHEN [Concomitant]
     Indication: PRODUCT USED FOR UNKNOWN INDICATION
     Dosage: UNK,UNK
     Route: 065
  7. LISINOPRIL [Concomitant]
     Indication: PRODUCT USED FOR UNKNOWN INDICATION
     Dosage: UNK,UNK
     Route: 065
  8. PROZAC [Concomitant]
     Indication: PRODUCT USED FOR UNKNOWN INDICATION
     Dosage: 10 MG, QD
     Route: 048
     Dates: start: 20140108

REACTIONS (35)
  - Blood potassium decreased [Unknown]
  - Dehydration [Unknown]
  - Abasia [Unknown]
  - Multiple sclerosis relapse [Unknown]
  - Urinary tract infection [Recovered/Resolved]
  - Multiple sclerosis relapse [Unknown]
  - Urinary tract infection [Recovered/Resolved]
  - Fall [Unknown]
  - Nasal congestion [Unknown]
  - Snoring [Unknown]
  - Tinnitus [Unknown]
  - Heart rate irregular [Unknown]
  - Palpitations [Unknown]
  - Hypertension [Unknown]
  - Faecal incontinence [Unknown]
  - Bone disorder [Unknown]
  - Arthropathy [Unknown]
  - Musculoskeletal stiffness [Unknown]
  - Muscle spasms [Unknown]
  - Contusion [Unknown]
  - Pollakiuria [Unknown]
  - Micturition urgency [Unknown]
  - Urinary hesitation [Unknown]
  - Urinary incontinence [Unknown]
  - Urinary retention [Unknown]
  - Vomiting [Unknown]
  - Muscular weakness [Unknown]
  - Hyperreflexia [None]
  - Balance disorder [Unknown]
  - Gait spastic [Unknown]
  - Back pain [Unknown]
  - Constipation [Unknown]
  - Headache [Unknown]
  - Paraesthesia [None]
  - Fatigue [Unknown]
